FAERS Safety Report 5219524-2 (Version None)
Quarter: 2007Q1

REPORT INFORMATION
  Report Type: 
  Country: None (occurrence: None)
  Receive Date: 20070125
  Receipt Date: 20070118
  Transmission Date: 20070707
  Serious: Yes (Hospitalization)
  Sender: FDA-Public Use
  Company Number: FR-BRISTOL-MYERS SQUIBB COMPANY-13654736

PATIENT
  Age: 37 Year
  Sex: Male

DRUGS (3)
  1. HOLOXAN [Suspect]
     Indication: GERM CELL CANCER
     Route: 042
     Dates: start: 20061114, end: 20061217
  2. CISPLATIN [Suspect]
     Indication: GERM CELL CANCER
     Route: 042
     Dates: start: 20061114, end: 20061217
  3. GEMCITABINE [Suspect]
     Indication: GERM CELL CANCER
     Route: 042
     Dates: start: 20061114, end: 20061217

REACTIONS (2)
  - FEBRILE BONE MARROW APLASIA [None]
  - SEPSIS [None]
